FAERS Safety Report 7463889-8 (Version None)
Quarter: 2011Q2

REPORT INFORMATION
  Report Type: 
  Country: None (occurrence: None)
  Receive Date: 20110506
  Receipt Date: 20110503
  Transmission Date: 20111010
  Serious: Yes (Life-Threatening)
  Sender: FDA-Public Use
  Company Number: CH-US-EMD SERONO, INC.-7038741

PATIENT
  Sex: Female

DRUGS (2)
  1. REBIF [Suspect]
     Indication: MULTIPLE SCLEROSIS
     Dates: start: 20101001, end: 20110126
  2. GYSELLE [Concomitant]
     Indication: CONTRACEPTION
     Route: 048
     Dates: start: 20080101

REACTIONS (7)
  - LYMPHOCYTE PERCENTAGE INCREASED [None]
  - THROMBOCYTOPENIA [None]
  - AUTOIMMUNE THROMBOCYTOPENIA [None]
  - SERUM FERRITIN INCREASED [None]
  - HAEMOGLOBIN DECREASED [None]
  - INFECTION [None]
  - VIRAL INFECTION [None]
